FAERS Safety Report 5442175-1 (Version None)
Quarter: 2007Q3

REPORT INFORMATION
  Report Type: 
  Country: None (occurrence: None)
  Receive Date: 20070731
  Receipt Date: 20070611
  Transmission Date: 20080115
  Serious: No
  Sender: FDA-Public Use
  Company Number: US200706003796

PATIENT
  Age: 65 Year
  Sex: Female

DRUGS (3)
  1. BYETTA [Suspect]
     Indication: DIABETES MELLITUS
     Dosage: 5 UG, 2/D, SUBCUTANEOUS; 10 UG, Q/D, SUBCUTANEOUS
     Route: 058
     Dates: start: 20050101, end: 20050101
  2. BYETTA [Suspect]
     Indication: DIABETES MELLITUS
     Dosage: 5 UG, 2/D, SUBCUTANEOUS; 10 UG, Q/D, SUBCUTANEOUS
     Route: 058
     Dates: start: 20050101
  3. GLUCOTROL [Concomitant]

REACTIONS (4)
  - BLOOD GLUCOSE DECREASED [None]
  - MUSCULOSKELETAL PAIN [None]
  - NAUSEA [None]
  - STOMACH DISCOMFORT [None]
